FAERS Safety Report 16245016 (Version 4)
Quarter: 2019Q4

REPORT INFORMATION
  Report Type: Report from Study
  Country: MX (occurrence: MX)
  Receive Date: 20190426
  Receipt Date: 20191015
  Transmission Date: 20200122
  Serious: Yes (Life-Threatening, Other)
  Sender: FDA-Public Use
  Company Number: PHHY2019MX096359

PATIENT
  Age: 36 Year
  Sex: Female
  Weight: 56 kg

DRUGS (6)
  1. GLIVEC [Suspect]
     Active Substance: IMATINIB MESYLATE
     Dosage: 1000 MG, Q24H
     Route: 048
  2. HIERRO DEXTRAN [Concomitant]
     Indication: PRODUCT USED FOR UNKNOWN INDICATION
     Dosage: EVERY 8 DAYS
     Route: 030
     Dates: start: 201902
  3. ACIFOLICO [Concomitant]
     Indication: PRODUCT USED FOR UNKNOWN INDICATION
     Dosage: UNK UNK, Q24H
     Route: 048
     Dates: start: 201902
  4. GLIVEC [Suspect]
     Active Substance: IMATINIB MESYLATE
     Indication: CHRONIC MYELOID LEUKAEMIA
     Dosage: 400 MG, Q24H
     Route: 048
     Dates: start: 20150101, end: 20190201
  5. HIERRO [Concomitant]
     Indication: PRODUCT USED FOR UNKNOWN INDICATION
     Dosage: EVERY 24 HOURS
     Route: 048
     Dates: start: 201902
  6. IRON [Concomitant]
     Active Substance: IRON
     Indication: PRODUCT USED FOR UNKNOWN INDICATION
     Dosage: 1 DF, Q24H
     Route: 048
     Dates: start: 201902

REACTIONS (6)
  - Respiratory disorder [Not Recovered/Not Resolved]
  - Incorrect dose administered [Unknown]
  - Amniotic fluid index decreased [Unknown]
  - Premature delivery [Unknown]
  - Maternal exposure during pregnancy [Not Recovered/Not Resolved]
  - Respiratory tract infection [Recovered/Resolved]

NARRATIVE: CASE EVENT DATE: 20190107
